FAERS Safety Report 10309386 (Version 1)
Quarter: 2014Q3

REPORT INFORMATION
  Report Type: Report from Study
  Country: US (occurrence: US)
  Receive Date: 20140716
  Receipt Date: 20140716
  Transmission Date: 20150326
  Serious: Yes (Other)
  Sender: FDA-Public Use
  Company Number: US-ABBVIE-14P-163-1257797-00

PATIENT
  Sex: Female

DRUGS (7)
  1. HUMIRA [Suspect]
     Active Substance: ADALIMUMAB
     Indication: REITER^S SYNDROME
  2. VITAMIN D [Concomitant]
     Active Substance: CHOLECALCIFEROL
     Indication: PRODUCT USED FOR UNKNOWN INDICATION
     Route: 048
  3. HUMIRA [Suspect]
     Active Substance: ADALIMUMAB
     Dosage: DOSE INCREASED
  4. SYMBICORT [Concomitant]
     Active Substance: BUDESONIDE\FORMOTEROL FUMARATE DIHYDRATE
     Indication: ASTHMA
     Dosage: 2 PUFFS IN AM AND 1 PUFF IN PM
  5. SPIRIVA [Concomitant]
     Active Substance: TIOTROPIUM BROMIDE MONOHYDRATE
     Indication: ASTHMA
  6. XOPENEX [Concomitant]
     Active Substance: LEVALBUTEROL HYDROCHLORIDE
     Indication: ASTHMA
  7. VENTOLIN ESPETTORANTE [Concomitant]
     Indication: ASTHMA
     Route: 055

REACTIONS (12)
  - Retinal detachment [Not Recovered/Not Resolved]
  - Polymenorrhoea [Recovered/Resolved]
  - Ankylosing spondylitis [Not Recovered/Not Resolved]
  - Back pain [Not Recovered/Not Resolved]
  - Hypersensitivity [Not Recovered/Not Resolved]
  - Sinusitis [Not Recovered/Not Resolved]
  - Abdominal pain [Not Recovered/Not Resolved]
  - Uterine cyst [Not Recovered/Not Resolved]
  - Pain [Recovering/Resolving]
  - Dry eye [Unknown]
  - Glaucoma [Not Recovered/Not Resolved]
  - Asthma [Not Recovered/Not Resolved]
